FAERS Safety Report 11241780 (Version 1)
Quarter: 2015Q3

REPORT INFORMATION
  Report Type: Spontaneous
  Country: HR (occurrence: HR)
  Receive Date: 20150706
  Receipt Date: 20150706
  Transmission Date: 20151125
  Serious: Yes (Death, Hospitalization)
  Sender: FDA-Public Use
  Company Number: PHHY2015HR078920

PATIENT
  Age: 53 Year
  Sex: Male

DRUGS (3)
  1. QUETIAPINE [Suspect]
     Active Substance: QUETIAPINE
     Indication: POST-TRAUMATIC STRESS DISORDER
     Route: 065
  2. NOREPINEPHRINE [Suspect]
     Active Substance: NOREPINEPHRINE\NOREPINEPHRINE BITARTRATE
     Indication: HAEMODYNAMIC INSTABILITY
     Route: 065
  3. NITRAZEPAM [Suspect]
     Active Substance: NITRAZEPAM
     Indication: POST-TRAUMATIC STRESS DISORDER
     Route: 065

REACTIONS (12)
  - Loss of consciousness [Unknown]
  - Hypotonia [Unknown]
  - Renal failure [Fatal]
  - Hepatic enzyme abnormal [Unknown]
  - Suicide attempt [Fatal]
  - Drug interaction [Fatal]
  - Poisoning [Fatal]
  - Pyrexia [Unknown]
  - Haemodynamic instability [Unknown]
  - Respiratory acidosis [Unknown]
  - Overdose [Fatal]
  - Hyperglycaemia [Unknown]
